FAERS Safety Report 12890520 (Version 1)
Quarter: 2016Q4

REPORT INFORMATION
  Report Type: Spontaneous
  Country: US (occurrence: US)
  Receive Date: 20161027
  Receipt Date: 20161027
  Transmission Date: 20170207
  Serious: No
  Sender: FDA-Public Use
  Company Number: US-JAZZ-2016-US-015507

PATIENT
  Sex: Male

DRUGS (19)
  1. NASONEX [Concomitant]
     Active Substance: MOMETASONE FUROATE
  2. PLAVIX [Concomitant]
     Active Substance: CLOPIDOGREL BISULFATE
  3. XANAX [Concomitant]
     Active Substance: ALPRAZOLAM
  4. PROAIR HFA [Concomitant]
     Active Substance: ALBUTEROL SULFATE
  5. PROVIGIL [Concomitant]
     Active Substance: MODAFINIL
  6. ASPIRIN. [Concomitant]
     Active Substance: ASPIRIN
  7. LEXAPRO [Concomitant]
     Active Substance: ESCITALOPRAM OXALATE
  8. DUEXIS [Concomitant]
     Active Substance: FAMOTIDINE\IBUPROFEN
  9. MOBIC [Concomitant]
     Active Substance: MELOXICAM
  10. NIFEDIPINE. [Concomitant]
     Active Substance: NIFEDIPINE
  11. XYREM [Suspect]
     Active Substance: SODIUM OXYBATE
     Dosage: DOSE ADJUSTMENTS
     Route: 048
     Dates: start: 200805, end: 201102
  12. ALTACE [Concomitant]
     Active Substance: RAMIPRIL
  13. OMEGA 3 FISH OIL [Concomitant]
     Active Substance: FISH OIL\OMEGA-3 FATTY ACIDS
  14. VENTOLIN [Concomitant]
     Active Substance: ALBUTEROL SULFATE
  15. OMEGA 3 [Concomitant]
     Active Substance: OMEGA-3 FATTY ACIDS
  16. HORIZANT [Concomitant]
     Active Substance: GABAPENTIN ENACARBIL
  17. XYREM [Suspect]
     Active Substance: SODIUM OXYBATE
     Indication: NARCOLEPSY
     Dosage: 2.25 G, BID
     Route: 048
     Dates: start: 200804, end: 200805
  18. XYREM [Suspect]
     Active Substance: SODIUM OXYBATE
     Dosage: 4.5 G, BID
     Route: 048
     Dates: start: 201102
  19. CRESTOR [Concomitant]
     Active Substance: ROSUVASTATIN CALCIUM

REACTIONS (2)
  - Blood pressure fluctuation [Recovering/Resolving]
  - Asthma [Unknown]
